FAERS Safety Report 15688484 (Version 2)
Quarter: 2019Q1

REPORT INFORMATION
  Report Type: Spontaneous
  Country: US (occurrence: US)
  Receive Date: 20181205
  Receipt Date: 20190302
  Transmission Date: 20190417
  Serious: Yes (Life-Threatening, Hospitalization, Other)
  Sender: FDA-Public Use
  Company Number: US-ZYDUS-030799

PATIENT
  Age: 34 Year
  Sex: Female

DRUGS (2)
  1. AMIODARONE [Suspect]
     Active Substance: AMIODARONE
     Indication: VENTRICULAR TACHYCARDIA
     Dosage: INFUSION OF AMIODARONE AT 1 MG/MIN
     Route: 041
  2. AMIODARONE [Suspect]
     Active Substance: AMIODARONE
     Indication: VENTRICULAR TACHYCARDIA
     Dosage: BOLUS OF AMIODARONE 150MG
     Route: 040

REACTIONS (7)
  - Bradycardia [Unknown]
  - Atrioventricular block second degree [Unknown]
  - Bundle branch block right [Unknown]
  - Unmasking of previously unidentified disease [Unknown]
  - Brugada syndrome [Unknown]
  - Hypotension [Unknown]
  - Mitral valve incompetence [Unknown]
